FAERS Safety Report 8010581-7 (Version None)
Quarter: 2011Q4

REPORT INFORMATION
  Report Type: 
  Country: None (occurrence: None)
  Receive Date: 20111228
  Receipt Date: 20111216
  Transmission Date: 20120403
  Serious: Yes (Other)
  Sender: FDA-Public Use
  Company Number: PHHY2011PL111441

PATIENT
  Age: 36 Year
  Sex: Male

DRUGS (8)
  1. BASILIXIMAB [Suspect]
     Indication: RENAL TRANSPLANT
     Dosage: 20 MG, BID
  2. TACROLIMUS [Concomitant]
     Dosage: 8-12 NG/ML
  3. TACROLIMUS [Concomitant]
     Dosage: 2 MG, BID
  4. MYCOPHENOLATE MOFETIL [Concomitant]
     Dosage: 500 MG, QID
     Dates: end: 20111110
  5. PREDNISONE [Concomitant]
     Dosage: 10 MG, UNK
  6. MYCOPHENOLATE MOFETIL [Concomitant]
     Dosage: (2 X 1 G), GS
  7. BASILIXIMAB [Suspect]
     Indication: PANCREAS TRANSPLANT
  8. MYCOPHENOLATE SODIUM [Concomitant]
     Dosage: 760 MG, BID

REACTIONS (6)
  - DIARRHOEA [None]
  - THROMBOSIS [None]
  - COMPLICATIONS OF TRANSPLANTED KIDNEY [None]
  - SINUSITIS [None]
  - PANCREATIC NECROSIS [None]
  - ABSCESS JAW [None]
